FAERS Safety Report 4812589-9 (Version None)
Quarter: 2005Q4

REPORT INFORMATION
  Report Type: 
  Country: None (occurrence: None)
  Receive Date: 20051028
  Receipt Date: 20041101
  Transmission Date: 20060501
  Serious: No
  Sender: FDA-Public Use
  Company Number: US-GLAXOSMITHKLINE-A0532075A

PATIENT
  Age: 42 Year
  Sex: Female

DRUGS (2)
  1. ADVAIR DISKUS 100/50 [Suspect]
     Indication: ASTHMA
     Dosage: 1PAT TWICE PER DAY
     Route: 055
     Dates: start: 20040918
  2. HORMONES [Concomitant]

REACTIONS (1)
  - THROAT IRRITATION [None]
